FAERS Safety Report 6203713-4 (Version None)
Quarter: 2009Q2

REPORT INFORMATION
  Report Type: 
  Country: None (occurrence: None)
  Receive Date: 20090527
  Receipt Date: 20090518
  Transmission Date: 20091009
  Serious: Yes (Hospitalization)
  Sender: FDA-Public Use
  Company Number: US-AVENTIS-200914351US

PATIENT
  Sex: Female

DRUGS (4)
  1. LANTUS [Suspect]
     Route: 058
     Dates: start: 20060101
  2. OPTICLIK GREY [Suspect]
     Dosage: DOSE: UNK
     Dates: start: 20060101
  3. ANALGESICS [Concomitant]
     Dosage: DOSE: UNK
  4. MUSCLE RELAXANTS [Concomitant]
     Dosage: DOSE: UNK

REACTIONS (2)
  - COLITIS ULCERATIVE [None]
  - INJECTION SITE HAEMATOMA [None]
